FAERS Safety Report 7578207-4 (Version None)
Quarter: 2011Q2

REPORT INFORMATION
  Report Type: 
  Country: None (occurrence: None)
  Receive Date: 20110628
  Receipt Date: 20110620
  Transmission Date: 20111010
  Serious: Yes (Hospitalization, Disabling)
  Sender: FDA-Public Use
  Company Number: B0706795A

PATIENT
  Sex: Male
  Weight: 8.8 kg

DRUGS (8)
  1. BUSULFAN [Suspect]
     Indication: CORD BLOOD TRANSPLANT THERAPY
     Dosage: 4MGM2 PER DAY
     Route: 042
     Dates: start: 20070911, end: 20070914
  2. PREDNISOLONE [Concomitant]
     Indication: IMMUNOSUPPRESSION
     Dosage: 10MG PER DAY
     Route: 065
     Dates: start: 20071024, end: 20071103
  3. CYCLOSPORINE [Concomitant]
     Indication: IMMUNOSUPPRESSION
     Dosage: 13.5MG PER DAY
     Route: 065
     Dates: start: 20070919, end: 20071023
  4. METHOTREXATE [Concomitant]
     Indication: IMMUNOSUPPRESSION
     Dosage: 4MG PER DAY
     Route: 065
     Dates: start: 20070921, end: 20070926
  5. GRAN [Concomitant]
     Dates: start: 20070926, end: 20071025
  6. ALKERAN [Suspect]
     Indication: CORD BLOOD TRANSPLANT THERAPY
     Dosage: 90MGM2 PER DAY
     Route: 042
     Dates: start: 20070915, end: 20070916
  7. VICCLOX [Concomitant]
     Dosage: 1.8ML PER DAY
     Route: 042
     Dates: end: 20071103
  8. KYTRIL [Concomitant]
     Dosage: .8MG PER DAY
     Route: 042
     Dates: end: 20070922

REACTIONS (12)
  - BLOOD LACTATE DEHYDROGENASE INCREASED [None]
  - OXYGEN SATURATION DECREASED [None]
  - BLOOD BILIRUBIN INCREASED [None]
  - OBLITERATIVE BRONCHIOLITIS [None]
  - MUCOSAL INFLAMMATION [None]
  - RENAL DISORDER [None]
  - BLOOD POTASSIUM INCREASED [None]
  - C-REACTIVE PROTEIN INCREASED [None]
  - PYREXIA [None]
  - ASPARTATE AMINOTRANSFERASE INCREASED [None]
  - ALANINE AMINOTRANSFERASE INCREASED [None]
  - BLOOD CREATININE INCREASED [None]
